FAERS Safety Report 8189047-X (Version None)
Quarter: 2012Q1

REPORT INFORMATION
  Report Type: 
  Country: None (occurrence: None)
  Receive Date: 20120307
  Receipt Date: 20120301
  Transmission Date: 20120608
  Serious: No
  Sender: FDA-Public Use
  Company Number: US-BIOGENIDEC-2012BI007664

PATIENT
  Sex: Female

DRUGS (2)
  1. TYSABRI [Suspect]
     Indication: MULTIPLE SCLEROSIS
     Route: 042
     Dates: start: 20120213
  2. DIAZEPAM [Concomitant]
     Indication: DYSKINESIA

REACTIONS (8)
  - INSOMNIA [None]
  - POLLAKIURIA [None]
  - BACK PAIN [None]
  - FALL [None]
  - FATIGUE [None]
  - UPPER RESPIRATORY TRACT CONGESTION [None]
  - MUSCULOSKELETAL PAIN [None]
  - URINARY TRACT INFECTION [None]
